FAERS Safety Report 8366666-9 (Version None)
Quarter: 2012Q2

REPORT INFORMATION
  Report Type: 
  Country: None (occurrence: None)
  Receive Date: 20120516
  Receipt Date: 20120516
  Transmission Date: 20120825
  Serious: No
  Sender: FDA-Public Use
  Company Number: None

PATIENT
  Age: 75 Year
  Sex: Female
  Weight: 55.7924 kg

DRUGS (1)
  1. AZELASTINE [Suspect]
     Indication: SINUSITIS
     Dosage: TWICE A DAY BOTH NOSTRILS 2 TIMES A DAY BOTH NOSTRILS
     Dates: start: 20120402, end: 20120407

REACTIONS (1)
  - AMNESIA [None]
